FAERS Safety Report 18468004 (Version 1)
Quarter: 2020Q4

REPORT INFORMATION
  Report Type: Spontaneous
  Country: US (occurrence: US)
  Receive Date: 20201104
  Receipt Date: 20201104
  Transmission Date: 20210114
  Serious: Yes (Hospitalization)
  Sender: FDA-Public Use
  Company Number: None

PATIENT
  Age: 34 Year
  Sex: Male
  Weight: 110 kg

DRUGS (2)
  1. ACETAMINOPHEN /HYDROCODONE (HYDROCODONE 5MG/ACETAMINOPHEN 325MG TAB) [Suspect]
     Active Substance: ACETAMINOPHEN\HYDROCODONE
     Indication: POST-TRAUMATIC STRESS DISORDER
     Route: 048
  2. ACETAMINOPHEN /HYDROCODONE (HYDROCODONE 5MG/ACETAMINOPHEN 325MG TAB) [Suspect]
     Active Substance: ACETAMINOPHEN\HYDROCODONE
     Indication: SUICIDAL IDEATION
     Route: 048

REACTIONS (1)
  - Sedation [None]

NARRATIVE: CASE EVENT DATE: 20200829
